FAERS Safety Report 8621903-8 (Version None)
Quarter: 2012Q3

REPORT INFORMATION
  Report Type: 
  Country: None (occurrence: None)
  Receive Date: 20120822
  Receipt Date: 20120822
  Transmission Date: 20120928
  Serious: Yes (Hospitalization)
  Sender: FDA-Public Use
  Company Number: None

PATIENT
  Age: 72 Year
  Sex: Female
  Weight: 81.2 kg

DRUGS (6)
  1. QUINAPRIL [Suspect]
     Indication: HYPERTENSION
     Dosage: 40 MG DAILY PO, LIKELY CHRONIC
     Route: 048
  2. INDAPAMIDE [Concomitant]
  3. OMEPRAZOLE [Concomitant]
  4. NIFEDEPINE [Concomitant]
  5. HYDROCHLOROTHIAZIDE [Concomitant]
  6. NITROGLYCERIN [Concomitant]

REACTIONS (2)
  - SWOLLEN TONGUE [None]
  - LOCAL SWELLING [None]
